FAERS Safety Report 6841609-5 (Version None)
Quarter: 2010Q3

REPORT INFORMATION
  Report Type: 
  Country: None (occurrence: None)
  Receive Date: 20100714
  Receipt Date: 20070816
  Transmission Date: 20110219
  Serious: No
  Sender: FDA-Public Use
  Company Number: US-PFIZER INC-2007057168

PATIENT
  Sex: Female
  Weight: 63.5 kg

DRUGS (8)
  1. CHANTIX [Suspect]
     Indication: SMOKING CESSATION THERAPY
     Dates: start: 20070611
  2. ANTITHROMBOTIC AGENTS [Concomitant]
  3. ESTRADIOL [Concomitant]
  4. SYNTHROID [Concomitant]
  5. VITAMINS [Concomitant]
  6. CALCIUM [Concomitant]
  7. TICLOPIDINE HCL [Concomitant]
  8. MOBIC [Concomitant]

REACTIONS (4)
  - NAUSEA [None]
  - POOR QUALITY SLEEP [None]
  - VOMITING [None]
  - WEIGHT INCREASED [None]
